FAERS Safety Report 7769856-9 (Version None)
Quarter: 2011Q3

REPORT INFORMATION
  Report Type: 
  Country: None (occurrence: None)
  Receive Date: 20110922
  Receipt Date: 20110105
  Transmission Date: 20111222
  Serious: Yes (Hospitalization)
  Sender: FDA-Public Use
  Company Number: US-ASTRAZENECA-2011SE00426

PATIENT
  Age: 63 Year
  Sex: Female
  Weight: 69.9 kg

DRUGS (12)
  1. SEROQUEL [Suspect]
     Indication: SLEEP DISORDER
     Route: 048
  2. SEROQUEL [Suspect]
     Route: 048
     Dates: start: 20080101, end: 20110102
  3. SEROQUEL [Suspect]
     Route: 048
     Dates: start: 20110102
  4. ASPIRIN [Concomitant]
  5. SEROQUEL [Suspect]
     Route: 048
     Dates: start: 20080101, end: 20110102
  6. ZANAFLEX [Concomitant]
  7. METADONE [Concomitant]
  8. CLONAZEPAM [Concomitant]
  9. SERTRALINE HYDROCHLORIDE [Concomitant]
  10. NEURONTIN [Concomitant]
  11. SEROQUEL [Suspect]
     Indication: ANXIETY
     Route: 048
  12. SEROQUEL [Suspect]
     Route: 048
     Dates: start: 20110102

REACTIONS (3)
  - INCORRECT DOSE ADMINISTERED [None]
  - TRANSIENT ISCHAEMIC ATTACK [None]
  - DEHYDRATION [None]
